FAERS Safety Report 6902150-4 (Version None)
Quarter: 2010Q3

REPORT INFORMATION
  Report Type: 
  Country: None (occurrence: None)
  Receive Date: 20100803
  Receipt Date: 20100727
  Transmission Date: 20110219
  Serious: Yes (Hospitalization)
  Sender: FDA-Public Use
  Company Number: JP-MERCK-1007USA04057

PATIENT
  Age: 61 Year
  Sex: Female

DRUGS (2)
  1. JANUVIA [Suspect]
     Indication: DIABETES MELLITUS
     Route: 048
     Dates: start: 20100611, end: 20100723
  2. GLIMICRON [Concomitant]
     Indication: DIABETES MELLITUS
     Dosage: THE DIVIDED DOSE FREQUENCY IS UNCERTAIN
     Route: 048
     Dates: start: 20100625

REACTIONS (2)
  - DIZZINESS [None]
  - NAUSEA [None]
